FAERS Safety Report 20112473 (Version 1)
Quarter: 2021Q4

REPORT INFORMATION
  Report Type: Spontaneous
  Country: TR (occurrence: TR)
  Receive Date: 20211125
  Receipt Date: 20211125
  Transmission Date: 20220303
  Serious: Yes (Death)
  Sender: FDA-Public Use
  Company Number: TR-PFIZER INC-202101556396

PATIENT
  Age: 2 Year
  Sex: Male

DRUGS (7)
  1. CARBOPLATIN [Suspect]
     Active Substance: CARBOPLATIN
     Indication: Medulloblastoma
     Dosage: UNK
  2. CISPLATIN [Suspect]
     Active Substance: CISPLATIN
     Indication: Medulloblastoma
     Dosage: UNK
  3. VINCRISTINE SULFATE [Suspect]
     Active Substance: VINCRISTINE SULFATE
     Indication: Medulloblastoma
     Dosage: UNK
  4. ETOPOSIDE [Suspect]
     Active Substance: ETOPOSIDE
     Indication: Medulloblastoma
     Dosage: UNK
  5. IFOSFAMIDE [Suspect]
     Active Substance: IFOSFAMIDE
     Indication: Medulloblastoma
     Dosage: UNK
  6. NIMOTUZUMAB [Concomitant]
     Active Substance: NIMOTUZUMAB
     Dosage: UNK
  7. TEMOZOLOMIDE [Concomitant]
     Active Substance: TEMOZOLOMIDE
     Dosage: UNK

REACTIONS (1)
  - Aplastic anaemia [Fatal]
